FAERS Safety Report 19599591 (Version 1)
Quarter: 2021Q3

REPORT INFORMATION
  Report Type: Spontaneous
  Country: CN (occurrence: CN)
  Receive Date: 20210722
  Receipt Date: 20210722
  Transmission Date: 20211014
  Serious: Yes (Hospitalization)
  Sender: FDA-Public Use
  Company Number: CN-PFIZER INC-2021862925

PATIENT
  Age: 39 Year
  Sex: Male
  Weight: 77 kg

DRUGS (12)
  1. SODIUM CHLORIDE. [Concomitant]
     Active Substance: SODIUM CHLORIDE
     Indication: VEHICLE SOLUTION USE
     Dosage: 100 ML, 1X/DAY
     Route: 033
     Dates: start: 20210603, end: 20210603
  2. AI NUO NING [Suspect]
     Active Substance: IDARUBICIN HYDROCHLORIDE
     Dosage: 20 MG, 1X/DAY
     Route: 041
     Dates: start: 20210608, end: 20210608
  3. SODIUM CHLORIDE. [Concomitant]
     Active Substance: SODIUM CHLORIDE
     Dosage: 10 ML, 1X/DAY
     Route: 033
     Dates: start: 20210603, end: 20210603
  4. CYTOSAR [Suspect]
     Active Substance: CYTARABINE
     Dosage: 0.200 G, 1X/DAY
     Route: 041
     Dates: start: 20210607, end: 20210611
  5. SODIUM CHLORIDE. [Concomitant]
     Active Substance: SODIUM CHLORIDE
     Dosage: 40 ML, 1X/DAY
     Route: 041
     Dates: start: 20210608, end: 20210608
  6. CYTOSAR [Suspect]
     Active Substance: CYTARABINE
     Indication: ACUTE PROMYELOCYTIC LEUKAEMIA
     Dosage: 0.500 G, 1X/DAY
     Route: 033
     Dates: start: 20210603, end: 20210603
  7. SODIUM CHLORIDE. [Concomitant]
     Active Substance: SODIUM CHLORIDE
     Dosage: 40 ML, 1X/DAY
     Route: 041
     Dates: start: 20210609, end: 20210609
  8. METHOTREXATE. [Suspect]
     Active Substance: METHOTREXATE
     Indication: ACUTE PROMYELOCYTIC LEUKAEMIA
     Dosage: 5.000 ML, 1X/DAY
     Route: 033
     Dates: start: 20210603, end: 20210603
  9. AI NUO NING [Suspect]
     Active Substance: IDARUBICIN HYDROCHLORIDE
     Dosage: 10 MG, 1X/DAY
     Route: 041
     Dates: start: 20210609, end: 20210609
  10. AI NUO NING [Suspect]
     Active Substance: IDARUBICIN HYDROCHLORIDE
     Indication: ACUTE PROMYELOCYTIC LEUKAEMIA
     Dosage: 20 MG, 1X/DAY
     Route: 041
     Dates: start: 20210607, end: 20210607
  11. SODIUM CHLORIDE. [Concomitant]
     Active Substance: SODIUM CHLORIDE
     Dosage: 250 ML, 1X/DAY
     Route: 041
     Dates: start: 20210607, end: 20210611
  12. SODIUM CHLORIDE. [Concomitant]
     Active Substance: SODIUM CHLORIDE
     Dosage: 40 ML, 1X/DAY
     Route: 041
     Dates: start: 20210607, end: 20210608

REACTIONS (6)
  - Haemoglobin decreased [Not Recovered/Not Resolved]
  - Condition aggravated [Not Recovered/Not Resolved]
  - Neutrophil count decreased [Recovered/Resolved]
  - Full blood count decreased [Recovering/Resolving]
  - White blood cell count decreased [Recovered/Resolved]
  - Platelet count decreased [Recovered/Resolved]

NARRATIVE: CASE EVENT DATE: 20210618
